FAERS Safety Report 5247408-2 (Version None)
Quarter: 2007Q1

REPORT INFORMATION
  Report Type: 
  Country: None (occurrence: None)
  Receive Date: 20070223
  Receipt Date: 20070223
  Transmission Date: 20070707
  Serious: Yes (Other)
  Sender: FDA-Public Use
  Company Number: None

PATIENT
  Age: 25 Year
  Sex: Female
  Weight: 109 kg

DRUGS (10)
  1. DAPTOMYCIN 500 [Suspect]
     Indication: STAPHYLOCOCCAL BACTERAEMIA
     Dosage: 650 MG DAILY IV
     Route: 042
     Dates: start: 20070215, end: 20070217
  2. NAFCILLIN SODIUM [Concomitant]
  3. CIPROFLOXACIN [Concomitant]
  4. ENOXAPARIN SODIUM [Concomitant]
  5. WARFARIN SODIUM [Concomitant]
  6. MORPHINE [Concomitant]
  7. PROMETHAZINE [Concomitant]
  8. TRAZODONE HCL [Concomitant]
  9. DOCUSATE [Concomitant]
  10. PANTOPRAZOLE SODIUM [Concomitant]

REACTIONS (3)
  - ERYTHEMA [None]
  - PRURITUS [None]
  - RASH GENERALISED [None]
